FAERS Safety Report 20476872 (Version 1)
Quarter: 2022Q1

REPORT INFORMATION
  Report Type: Spontaneous
  Country: US (occurrence: US)
  Receive Date: 20220215
  Receipt Date: 20220215
  Transmission Date: 20220423
  Serious: No
  Sender: FDA-Public Use
  Company Number: US-SA-SAC20220211001313

PATIENT
  Age: 7 Year
  Sex: Female

DRUGS (7)
  1. DUPIXENT [Suspect]
     Active Substance: DUPILUMAB
     Indication: Dermatitis atopic
     Dosage: 300 MG, QOW
     Route: 058
     Dates: start: 20220124
  2. AQUAPHOR [Concomitant]
     Active Substance: PETROLATUM
     Indication: Eye pruritus
     Dosage: UNK
  3. AQUAPHOR [Concomitant]
     Active Substance: PETROLATUM
     Indication: Swelling of eyelid
  4. BENADRYL ALLERGY [Concomitant]
     Active Substance: DIPHENHYDRAMINE HYDROCHLORIDE
     Indication: Eye pruritus
     Dosage: UNK
  5. BENADRYL ALLERGY [Concomitant]
     Active Substance: DIPHENHYDRAMINE HYDROCHLORIDE
     Indication: Swelling of eyelid
  6. TYLENOL [Concomitant]
     Active Substance: ACETAMINOPHEN
     Dosage: UNK
  7. TRIAMCINOLONE ACETONIDE [Concomitant]
     Active Substance: TRIAMCINOLONE ACETONIDE
     Dosage: UNK

REACTIONS (9)
  - Skin haemorrhage [Unknown]
  - Pruritus [Unknown]
  - Swelling of eyelid [Unknown]
  - Skin irritation [Unknown]
  - Scab [Unknown]
  - Sleep disorder [Unknown]
  - Rash erythematous [Unknown]
  - Eye pruritus [Unknown]
  - Product use issue [Unknown]

NARRATIVE: CASE EVENT DATE: 20220124
